FAERS Safety Report 17964895 (Version 1)
Quarter: 2020Q2

REPORT INFORMATION
  Report Type: Spontaneous
  Country: GB (occurrence: GB)
  Receive Date: 20200630
  Receipt Date: 20200630
  Transmission Date: 20200714
  Serious: Yes (Life-Threatening, Hospitalization)
  Sender: FDA-Public Use
  Company Number: GB-ALLERGAN-2025109US

PATIENT
  Sex: Female

DRUGS (1)
  1. BOTOX [Suspect]
     Active Substance: ONABOTULINUMTOXINA
     Indication: SPASMODIC DYSPHONIA
     Dosage: UNK, SINGLE

REACTIONS (6)
  - Upper airway obstruction [Recovered/Resolved]
  - Stridor [Unknown]
  - Dyspnoea [Unknown]
  - Productive cough [Unknown]
  - Odynophagia [Unknown]
  - Dysphonia [Unknown]
